FAERS Safety Report 26157429 (Version 1)
Quarter: 2025Q4

REPORT INFORMATION
  Report Type: Spontaneous
  Country: US (occurrence: None)
  Receive Date: 20251212
  Receipt Date: 20251212
  Transmission Date: 20260118
  Serious: Yes (Hospitalization)
  Sender: FDA-CTU
  Company Number: None

PATIENT
  Sex: Female

DRUGS (6)
  1. LENALIDOMIDE [Suspect]
     Active Substance: LENALIDOMIDE
     Indication: Hypocalcaemia
     Dosage: FREQUENCY : DAILY;
     Route: 048
     Dates: start: 20250918
  2. BUMETANIDE [Concomitant]
     Active Substance: BUMETANIDE
  3. DARZALEX [Concomitant]
     Active Substance: DARATUMUMAB
  4. PROCRIT [Concomitant]
     Active Substance: ERYTHROPOIETIN
  5. SULFAMETHOXAZOLE\TRIMETHOPRIM [Concomitant]
     Active Substance: SULFAMETHOXAZOLE\TRIMETHOPRIM
  6. XGEVA [Concomitant]
     Active Substance: DENOSUMAB

REACTIONS (2)
  - Hospitalisation [None]
  - Therapy interrupted [None]
